FAERS Safety Report 7398107-2 (Version None)
Quarter: 2011Q2

REPORT INFORMATION
  Report Type: 
  Country: None (occurrence: None)
  Receive Date: 20110406
  Receipt Date: 20110331
  Transmission Date: 20111010
  Serious: Yes (Other)
  Sender: FDA-Public Use
  Company Number: FR-ABBOTT-11P-056-0703658-00

PATIENT
  Age: 34 Year
  Sex: Female
  Weight: 51 kg

DRUGS (3)
  1. HUMIRA [Suspect]
     Dosage: 80MG LOADING DOSE
     Dates: start: 20090923, end: 20090923
  2. HUMIRA [Suspect]
     Indication: CROHN'S DISEASE
     Dosage: 160MG LOADING DOSE
     Dates: start: 20090908, end: 20090908
  3. HUMIRA [Suspect]
     Dates: end: 20091101

REACTIONS (10)
  - DRUG RESISTANCE [None]
  - NASAL SEPTUM DEVIATION [None]
  - RHINITIS [None]
  - CANDIDIASIS [None]
  - NASAL CONGESTION [None]
  - DRUG INEFFECTIVE [None]
  - LYMPHADENOPATHY [None]
  - UPPER AIRWAY OBSTRUCTION [None]
  - NASAL TURBINATE HYPERTROPHY [None]
  - DIARRHOEA [None]
